FAERS Safety Report 9901209 (Version 2)
Quarter: 2014Q1

REPORT INFORMATION
  Report Type: Spontaneous
  Country: JP (occurrence: JP)
  Receive Date: 20140217
  Receipt Date: 20140305
  Transmission Date: 20141002
  Serious: Yes (Other)
  Sender: FDA-Public Use
  Company Number: US-ASTRAZENECA-2014SE11006

PATIENT
  Age: 71 Year
  Sex: Female

DRUGS (3)
  1. BLOPRESS [Suspect]
     Dosage: UNK
     Route: 048
  2. OMEPRAZOLE [Suspect]
     Dosage: UNK
     Route: 048
  3. ZONISAMIDE [Suspect]
     Dosage: UNK
     Route: 048

REACTIONS (1)
  - Stevens-Johnson syndrome [Unknown]
